FAERS Safety Report 9693897 (Version 1)
Quarter: 2013Q4

REPORT INFORMATION
  Report Type: Spontaneous
  Country: FR (occurrence: FR)
  Receive Date: 20131118
  Receipt Date: 20131118
  Transmission Date: 20140711
  Serious: Yes (Other)
  Sender: FDA-Public Use
  Company Number: FR-PFIZER INC-2013327763

PATIENT
  Sex: Female

DRUGS (1)
  1. EFFEXOR LP [Suspect]
     Indication: NECK PAIN
     Dosage: 75 MG, DAILY

REACTIONS (2)
  - Preterm premature rupture of membranes [Unknown]
  - Off label use [Unknown]
